FAERS Safety Report 13729785 (Version 1)
Quarter: 2017Q3

REPORT INFORMATION
  Report Type: Spontaneous
  Country: US (occurrence: US)
  Receive Date: 20170707
  Receipt Date: 20170707
  Transmission Date: 20171127
  Serious: Yes (Other)
  Sender: FDA-Public Use
  Company Number: US-JNJFOC-20170500354

PATIENT
  Sex: Female
  Weight: 88.5 kg

DRUGS (4)
  1. ADCIRCA [Concomitant]
     Active Substance: TADALAFIL
     Route: 065
  2. TYVASO [Suspect]
     Active Substance: TREPROSTINIL
     Indication: PULMONARY HYPERTENSION
     Dosage: 18-54 UG (3-9 BREATHS)
     Route: 055
     Dates: start: 20170331
  3. XARELTO [Suspect]
     Active Substance: RIVAROXABAN
     Indication: PRODUCT USED FOR UNKNOWN INDICATION
     Route: 048
  4. OPSUMIT [Concomitant]
     Active Substance: MACITENTAN
     Route: 065

REACTIONS (6)
  - Headache [Unknown]
  - Tremor [Unknown]
  - Oropharyngeal pain [Unknown]
  - Wound haemorrhage [Unknown]
  - Dizziness [Unknown]
  - Cough [Unknown]

NARRATIVE: CASE EVENT DATE: 2017
